FAERS Safety Report 16869798 (Version 1)
Quarter: 2019Q3

REPORT INFORMATION
  Report Type: Spontaneous
  Country: US (occurrence: US)
  Receive Date: 20190930
  Receipt Date: 20190930
  Transmission Date: 20191005
  Serious: Yes (Other)
  Sender: FDA-Public Use
  Company Number: US-COOPERSURGICAL, INC.-US-2019CPS002924

PATIENT
  Age: 33 Year
  Sex: Female
  Weight: 74.83 kg

DRUGS (2)
  1. ASPIRIN                            /00002701/ [Concomitant]
     Active Substance: ASPIRIN
     Indication: FACTOR V LEIDEN MUTATION
     Dosage: UNK
     Route: 065
  2. PARAGARD T 380A [Suspect]
     Active Substance: COPPER
     Indication: CONTRACEPTION
     Dosage: UNK
     Route: 015
     Dates: start: 2006

REACTIONS (11)
  - Foreign body in reproductive tract [Not Recovered/Not Resolved]
  - Factor V Leiden carrier [Unknown]
  - Metrorrhagia [Unknown]
  - Complication of device removal [Not Recovered/Not Resolved]
  - Embedded device [Not Recovered/Not Resolved]
  - Procedural haemorrhage [Recovered/Resolved]
  - Menorrhagia [Unknown]
  - Pain [Unknown]
  - Abdominal pain [Not Recovered/Not Resolved]
  - Device use issue [Not Recovered/Not Resolved]
  - Device breakage [Not Recovered/Not Resolved]

NARRATIVE: CASE EVENT DATE: 2006
